FAERS Safety Report 6299555-4 (Version None)
Quarter: 2009Q3

REPORT INFORMATION
  Report Type: 
  Country: None (occurrence: None)
  Receive Date: 20090805
  Receipt Date: 20090805
  Transmission Date: 20100115
  Serious: Yes (Death)
  Sender: FDA-Public Use
  Company Number: None

PATIENT
  Age: 14 Year
  Sex: Male
  Weight: 5.8968 kg

DRUGS (1)
  1. TAPAZOLE [Suspect]
     Indication: HYPERTHYROIDISM
     Dosage: 30MG DAILY PO
     Route: 048
     Dates: start: 20060701, end: 20090801

REACTIONS (1)
  - PRODUCT SUBSTITUTION ISSUE [None]
